FAERS Safety Report 14102377 (Version 1)
Quarter: 2017Q4

REPORT INFORMATION
  Report Type: Spontaneous
  Country: US (occurrence: None)
  Receive Date: 20171018
  Receipt Date: 20171018
  Transmission Date: 20180321
  Serious: Yes (Death, Hospitalization)
  Sender: FDA-Public Use
  Company Number: None

PATIENT
  Age: 59 Year
  Sex: Male
  Weight: 71.21 kg

DRUGS (1)
  1. NUVIGIL [Suspect]
     Active Substance: ARMODAFINIL
     Dates: end: 20170629

REACTIONS (5)
  - Aphasia [None]
  - Nuclear magnetic resonance imaging abnormal [None]
  - Seizure [None]
  - Confusional state [None]
  - Neoplasm progression [None]

NARRATIVE: CASE EVENT DATE: 20170629
